FAERS Safety Report 17885890 (Version 1)
Quarter: 2020Q2

REPORT INFORMATION
  Report Type: Spontaneous
  Country: FR (occurrence: FR)
  Receive Date: 20200611
  Receipt Date: 20200611
  Transmission Date: 20200714
  Serious: Yes (Other)
  Sender: FDA-Public Use
  Company Number: NVSC2020FR161254

PATIENT
  Sex: Male
  Weight: 86 kg

DRUGS (1)
  1. TACROLIMUS. [Suspect]
     Active Substance: TACROLIMUS
     Indication: IMMUNOSUPPRESSION
     Dosage: 9 MG, QD
     Route: 048
     Dates: start: 20160909, end: 20191226

REACTIONS (1)
  - External ear neoplasm malignant [Recovered/Resolved]

NARRATIVE: CASE EVENT DATE: 201912
